FAERS Safety Report 6774001-2 (Version None)
Quarter: 2010Q2

REPORT INFORMATION
  Report Type: 
  Country: None (occurrence: None)
  Receive Date: 20100617
  Receipt Date: 20100607
  Transmission Date: 20101027
  Serious: Yes (Hospitalization)
  Sender: FDA-Public Use
  Company Number: JP-WYE-H13137710

PATIENT
  Age: 73 Year
  Sex: Female

DRUGS (16)
  1. ANCARON [Suspect]
     Indication: ARRHYTHMIA PROPHYLAXIS
     Route: 048
     Dates: start: 20041201, end: 20090410
  2. ANCARON [Suspect]
     Indication: ATRIAL TACHYCARDIA
     Route: 048
     Dates: start: 20090703, end: 20090825
  3. BLOPRESS [Concomitant]
  4. ALLOPURINOL [Concomitant]
  5. DIART [Concomitant]
  6. ARTIST [Concomitant]
  7. AMLODIPINE [Concomitant]
  8. PARIET [Concomitant]
  9. LASIX [Concomitant]
  10. ITOROL [Concomitant]
  11. SIGMART [Concomitant]
  12. NITROGLYCERIN ^SLOVAKOFARMA^ [Concomitant]
  13. KALIMATE [Concomitant]
  14. SEPAZON [Concomitant]
  15. NOVORAPID [Concomitant]
  16. ASPIRIN [Concomitant]

REACTIONS (3)
  - CARDIAC FAILURE [None]
  - CELL MARKER INCREASED [None]
  - CONDITION AGGRAVATED [None]
